FAERS Safety Report 19713696 (Version 1)
Quarter: 2021Q3

REPORT INFORMATION
  Report Type: Spontaneous
  Country: US (occurrence: US)
  Receive Date: 20210818
  Receipt Date: 20210818
  Transmission Date: 20211014
  Serious: No
  Sender: FDA-Public Use
  Company Number: US-SA-2021SA272047

PATIENT
  Age: 60 Year
  Sex: Female

DRUGS (1)
  1. DUPIXENT [Suspect]
     Active Substance: DUPILUMAB
     Indication: ASTHMA
     Dosage: 200 MG/1.14ML, QOW
     Route: 058
     Dates: start: 20210223

REACTIONS (2)
  - Injection site bruising [Not Recovered/Not Resolved]
  - Injection site pruritus [Not Recovered/Not Resolved]

NARRATIVE: CASE EVENT DATE: 20210712
